FAERS Safety Report 6523963-7 (Version None)
Quarter: 2009Q4

REPORT INFORMATION
  Report Type: 
  Country: None (occurrence: None)
  Receive Date: 20091230
  Receipt Date: 20091230
  Transmission Date: 20100525
  Serious: Yes (Other)
  Sender: FDA-Public Use
  Company Number: None

PATIENT
  Age: 71 Year
  Sex: Male
  Weight: 88.905 kg

DRUGS (1)
  1. CARBAMAZEPINE [Suspect]
     Indication: TRIGEMINAL NEURALGIA
     Dosage: 200 MG (1) TAB TWICE DAILY MOUTH
     Route: 048
     Dates: start: 20091023, end: 20091208

REACTIONS (4)
  - BLISTER [None]
  - PRURITUS [None]
  - RASH [None]
  - SKIN EXFOLIATION [None]
